FAERS Safety Report 9187544 (Version 1)
Quarter: 2013Q1

REPORT INFORMATION
  Report Type: Spontaneous
  Country: JP (occurrence: JP)
  Receive Date: 20130325
  Receipt Date: 20130325
  Transmission Date: 20140127
  Serious: Yes (Other)
  Sender: FDA-Public Use
  Company Number: JP-JNJFOC-20130310008

PATIENT
  Sex: Male

DRUGS (1)
  1. RISPERDAL [Suspect]
     Indication: AGITATION
     Dosage: TWICE IN TOTAL
     Route: 065

REACTIONS (4)
  - Delirium [Unknown]
  - Coordination abnormal [Unknown]
  - Insomnia [Unknown]
  - Decreased appetite [Unknown]
